FAERS Safety Report 7736835-7 (Version None)
Quarter: 2011Q3

REPORT INFORMATION
  Report Type: 
  Country: None (occurrence: None)
  Receive Date: 20110908
  Receipt Date: 20110908
  Transmission Date: 20111222
  Serious: Yes (Life-Threatening)
  Sender: FDA-Public Use
  Company Number: None

PATIENT
  Age: 62 Year
  Sex: Female
  Weight: 79.378 kg

DRUGS (13)
  1. RITUXAN [Suspect]
     Indication: RHEUMATOID ARTHRITIS
     Dosage: TWICE
     Route: 042
     Dates: start: 20110308, end: 20110322
  2. MUCINEX [Concomitant]
  3. PERCOCET [Concomitant]
  4. MAGIC MOUTH WASH, [Concomitant]
  5. TESALON PEARL [Concomitant]
  6. VERAPAMIL [Concomitant]
  7. ACYCLOVIR [Concomitant]
  8. IMODIUM [Concomitant]
  9. AMBIEN [Concomitant]
  10. PREDNISONE [Concomitant]
  11. SYNTHROID [Concomitant]
  12. BENADRYL [Concomitant]
  13. FLUCONAZOLE [Concomitant]

REACTIONS (13)
  - ORAL PAIN [None]
  - DYSPHAGIA [None]
  - DEHYDRATION [None]
  - OROPHARYNGEAL PAIN [None]
  - CHOKING [None]
  - TONGUE COATED [None]
  - VOCAL CORD DISORDER [None]
  - DYSGEUSIA [None]
  - LARYNGITIS [None]
  - GLOSSODYNIA [None]
  - WEIGHT DECREASED [None]
  - DIARRHOEA [None]
  - REGURGITATION [None]
